FAERS Safety Report 11642461 (Version 1)
Quarter: 2015Q4

REPORT INFORMATION
  Report Type: Spontaneous
  Country: US (occurrence: US)
  Receive Date: 20151019
  Receipt Date: 20151019
  Transmission Date: 20160304
  Serious: Yes (Other)
  Sender: FDA-Public Use
  Company Number: US-ELI_LILLY_AND_COMPANY-US201508006252

PATIENT
  Age: 23 Year
  Sex: Female
  Weight: 142 kg

DRUGS (6)
  1. AVASTIN [Concomitant]
     Active Substance: BEVACIZUMAB
  2. ALOXI [Concomitant]
     Active Substance: PALONOSETRON HYDROCHLORIDE
  3. DEXAMETHASONE. [Concomitant]
     Active Substance: DEXAMETHASONE
  4. CARBOPLATIN. [Concomitant]
     Active Substance: CARBOPLATIN
  5. GEMZAR [Suspect]
     Active Substance: GEMCITABINE HYDROCHLORIDE
     Indication: TRIPLE NEGATIVE BREAST CANCER
     Dosage: UNK, UNKNOWN
     Route: 042
     Dates: start: 20150327, end: 20150605
  6. GEMZAR [Suspect]
     Active Substance: GEMCITABINE HYDROCHLORIDE
     Indication: OVARIAN CANCER

REACTIONS (2)
  - Malignant neoplasm progression [Unknown]
  - Hepatotoxicity [Recovered/Resolved]
